FAERS Safety Report 9519167 (Version 2)
Quarter: 2014Q1

REPORT INFORMATION
  Report Type: Spontaneous
  Country: US (occurrence: None)
  Receive Date: 20130305
  Receipt Date: 20140306
  Transmission Date: 20141002
  Serious: Yes (Other)
  Sender: FDA-Public Use
  Company Number: 163-21880-12032918

PATIENT
  Age: 59 Year
  Sex: Female
  Weight: 80.7 kg

DRUGS (1)
  1. REVLIMID [Suspect]
     Indication: PLASMA CELL MYELOMA
     Dosage: 15 MG, 21 IN 21 D, PO
     Route: 048
     Dates: start: 20100423, end: 2010

REACTIONS (5)
  - Drug dose omission [None]
  - Diarrhoea [None]
  - Vomiting [None]
  - Bronchitis [None]
  - Inappropriate schedule of drug administration [None]
